FAERS Safety Report 8854698 (Version 1)
Quarter: 2012Q4

REPORT INFORMATION
  Report Type: 
  Country: US (occurrence: US)
  Receive Date: 20121023
  Receipt Date: 20121023
  Transmission Date: 20130627
  Serious: No
  Sender: FDA-Public Use
  Company Number: US-BAYER-2012-110693

PATIENT
  Sex: Female

DRUGS (3)
  1. MIRENA [Suspect]
     Dosage: 20 mcg/24hr, CONT
     Route: 015
     Dates: start: 2012
  2. CREAMS [Concomitant]
     Indication: RASH GENERALISED
  3. PREDNISONE [Concomitant]
     Indication: RASH GENERALISED

REACTIONS (1)
  - Rash generalised [None]
